FAERS Safety Report 7078687-7 (Version None)
Quarter: 2010Q4

REPORT INFORMATION
  Report Type: 
  Country: None (occurrence: None)
  Receive Date: 20101101
  Receipt Date: 20101101
  Transmission Date: 20110411
  Serious: Yes (Hospitalization)
  Sender: FDA-Public Use
  Company Number: None

PATIENT
  Age: 66 Year
  Sex: Male
  Weight: 93.441 kg

DRUGS (1)
  1. WARFARIN SODIUM [Suspect]
     Indication: THROMBOSIS PROPHYLAXIS
     Dosage: 1MG DAILY P.O.
     Route: 048
     Dates: start: 19490927

REACTIONS (1)
  - COLITIS ISCHAEMIC [None]
